FAERS Safety Report 19906980 (Version 1)
Quarter: 2021Q4

REPORT INFORMATION
  Report Type: Spontaneous
  Country: None (occurrence: US)
  Receive Date: 20211001
  Receipt Date: 20211001
  Transmission Date: 20220303
  Serious: Yes (Hospitalization)
  Sender: FDA-Public Use
  Company Number: None

PATIENT
  Sex: Male
  Weight: 100.4 kg

DRUGS (2)
  1. BENDAMUSTINE HYDROCHLORIDE [Suspect]
     Active Substance: BENDAMUSTINE HYDROCHLORIDE
     Dates: end: 20210922
  2. RITUXIMAB [Suspect]
     Active Substance: RITUXIMAB
     Dates: end: 20210922

REACTIONS (8)
  - Fatigue [None]
  - Chills [None]
  - Nausea [None]
  - Vomiting [None]
  - Hypotension [None]
  - Tachycardia [None]
  - Loss of consciousness [None]
  - Retching [None]

NARRATIVE: CASE EVENT DATE: 20210923
